FAERS Safety Report 20652396 (Version 5)
Quarter: 2022Q4

REPORT INFORMATION
  Report Type: Report from Study
  Country: US (occurrence: US)
  Receive Date: 20220330
  Receipt Date: 20221114
  Transmission Date: 20230112
  Serious: Yes (Other)
  Sender: FDA-Public Use
  Company Number: US-ABBVIE-22K-163-4334226-00

PATIENT
  Sex: Female

DRUGS (2)
  1. HUMIRA [Suspect]
     Active Substance: ADALIMUMAB
     Indication: Rheumatoid arthritis
     Dosage: CITRATE FREE
     Route: 058
  2. JANSSEN COVID-19 VACCINE [Suspect]
     Active Substance: AD26.COV2.S
     Indication: COVID-19 immunisation
     Dosage: TIME INTERVAL: 1 TOTAL: FIRST DOSE. ONE IN ONCE
     Route: 030
     Dates: start: 20210401, end: 20210401

REACTIONS (14)
  - Skin disorder [Unknown]
  - Systemic lupus erythematosus [Unknown]
  - Decreased appetite [Unknown]
  - Illness [Unknown]
  - Skin ulcer [Not Recovered/Not Resolved]
  - Gastric disorder [Unknown]
  - Blister [Unknown]
  - Atrial fibrillation [Unknown]
  - Hepatic enzyme increased [Unknown]
  - Injection site rash [Recovering/Resolving]
  - Hypertension [Unknown]
  - Pyrexia [Unknown]
  - Headache [Unknown]
  - Pain [Unknown]

NARRATIVE: CASE EVENT DATE: 20210101
